FAERS Safety Report 9538300 (Version 1)
Quarter: 2013Q3

REPORT INFORMATION
  Report Type: Spontaneous
  Country: GB (occurrence: GB)
  Receive Date: 20130920
  Receipt Date: 20130920
  Transmission Date: 20140515
  Serious: Yes (Other)
  Sender: FDA-Public Use
  Company Number: GB-009507513-1309GBR005632

PATIENT
  Age: 21 Year
  Sex: Female
  Weight: 87 kg

DRUGS (2)
  1. CERAZETTE [Suspect]
     Indication: CONTRACEPTION
     Dosage: 75 MICROGRAM, 1/1 DAYS
     Route: 048
     Dates: start: 20120927, end: 20130305
  2. NEXPLANON [Suspect]
     Indication: CONTRACEPTION
     Dosage: 68 MG, UNK
     Route: 059
     Dates: start: 20130226, end: 20130830

REACTIONS (2)
  - Pregnancy on contraceptive [Unknown]
  - Device failure [Unknown]
